FAERS Safety Report 9536827 (Version 7)
Quarter: 2014Q2

REPORT INFORMATION
  Report Type: Spontaneous
  Country: US (occurrence: US)
  Receive Date: 20130919
  Receipt Date: 20140528
  Transmission Date: 20141212
  Serious: Yes (Death, Hospitalization, Disabling, Other)
  Sender: FDA-Public Use
  Company Number: US-009507513-1205USA01102

PATIENT
  Sex: Female
  Weight: 56.69 kg

DRUGS (3)
  1. FOSAMAX [Suspect]
     Indication: OSTEOPOROSIS
     Dosage: 70 MG, QW
     Route: 048
     Dates: start: 20010119
  2. FOSAMAX [Suspect]
     Indication: OSTEOPENIA
     Dosage: 70 MG, QD
     Route: 048
  3. ALENDRONATE SODIUM [Suspect]
     Dosage: 70 MG, QW
     Route: 048

REACTIONS (35)
  - Intramedullary rod insertion [Unknown]
  - Chronic obstructive pulmonary disease [Fatal]
  - Pleural effusion [Unknown]
  - Respiratory failure [Fatal]
  - Haemorrhagic anaemia [Unknown]
  - Cholecystectomy [Unknown]
  - Femur fracture [Recovering/Resolving]
  - Incontinence [Unknown]
  - Type 2 diabetes mellitus [Unknown]
  - Vaginal prolapse [Unknown]
  - Peripheral venous disease [Not Recovered/Not Resolved]
  - Tachypnoea [Unknown]
  - Essential hypertension [Unknown]
  - Transient ischaemic attack [Unknown]
  - Wound [Recovering/Resolving]
  - Avulsion fracture [Recovering/Resolving]
  - Osteoarthritis [Unknown]
  - Steroid therapy [Not Recovered/Not Resolved]
  - Cardiac failure congestive [Unknown]
  - Spinal osteoarthritis [Unknown]
  - Osteoarthritis [Unknown]
  - Unevaluable event [Unknown]
  - Intervertebral disc degeneration [Unknown]
  - Blood sodium decreased [Unknown]
  - Heart rate increased [Unknown]
  - Mood altered [Unknown]
  - Pulmonary hypertension [Unknown]
  - Productive cough [Unknown]
  - Anxiety [Unknown]
  - Inguinal hernia [Unknown]
  - Inappropriate schedule of drug administration [Unknown]
  - Nausea [Unknown]
  - Oedema peripheral [Unknown]
  - Back pain [Unknown]
  - Asthenia [Unknown]
